FAERS Safety Report 8306433-5 (Version None)
Quarter: 2012Q2

REPORT INFORMATION
  Report Type: 
  Country: None (occurrence: None)
  Receive Date: 20120423
  Receipt Date: 20120411
  Transmission Date: 20120825
  Serious: Yes (Other)
  Sender: FDA-Public Use
  Company Number: PHHY2012ES032046

PATIENT
  Age: 84 Year
  Sex: Female
  Weight: 56 kg

DRUGS (6)
  1. HYDROMORPHONE HYDROCHLORIDE [Suspect]
     Route: 048
     Dates: start: 20110101
  2. CALCIUM CARBONATE [Concomitant]
     Dates: start: 20110101
  3. VALDOXAN [Suspect]
     Indication: DEPRESSION
     Dosage: 25 MG, QD
     Route: 048
     Dates: start: 20120202, end: 20120205
  4. SINTROM [Concomitant]
     Dates: start: 20110101
  5. IBANDRONATE SODIUM [Concomitant]
     Dates: start: 20110101
  6. LORAZEPAM [Suspect]
     Route: 048
     Dates: start: 20110101

REACTIONS (1)
  - PSYCHOTIC DISORDER [None]
